FAERS Safety Report 7099051-0 (Version None)
Quarter: 2010Q4

REPORT INFORMATION
  Report Type: 
  Country: None (occurrence: None)
  Receive Date: 20101112
  Receipt Date: 20101104
  Transmission Date: 20110411
  Serious: Yes (Congenital Anomaly)
  Sender: FDA-Public Use
  Company Number: FR-BRISTOL-MYERS SQUIBB COMPANY-15371750

PATIENT
  Age: 1 Day
  Sex: Male
  Weight: 2 kg

DRUGS (9)
  1. ORENCIA [Suspect]
     Route: 064
     Dates: start: 20080601, end: 20080701
  2. MYFORTIC [Suspect]
     Dosage: GASTRO-RESISTANT AND FILM-COATED TABLET
     Route: 064
     Dates: start: 20080601, end: 20080701
  3. BACTRIM [Suspect]
     Route: 064
     Dates: start: 20080601, end: 20080701
  4. APRANAX [Suspect]
     Route: 064
     Dates: start: 20080601, end: 20080701
  5. CORTANCYL [Suspect]
  6. CORTANCYL [Suspect]
  7. COLCHICINE [Suspect]
  8. VALACYCLOVIR HYDROCHLORIDE [Suspect]
  9. SPECIAFOLDINE [Suspect]

REACTIONS (3)
  - CONGENITAL CENTRAL NERVOUS SYSTEM ANOMALY [None]
  - MENINGOCELE [None]
  - NERVOUS SYSTEM DISORDER [None]
